FAERS Safety Report 5868537-6 (Version None)
Quarter: 2008Q3

REPORT INFORMATION
  Report Type: 
  Country: None (occurrence: None)
  Receive Date: 20080902
  Receipt Date: 20080902
  Transmission Date: 20090109
  Serious: Yes (Death)
  Sender: FDA-Public Use
  Company Number: None

PATIENT
  Age: 85 Year
  Sex: Female
  Weight: 74.8435 kg

DRUGS (1)
  1. PLAVIX [Suspect]
     Dosage: ONE DAILY PO
     Route: 048
     Dates: start: 20080813, end: 20080826

REACTIONS (7)
  - ABDOMINAL PAIN [None]
  - ASTHENIA [None]
  - CONFUSIONAL STATE [None]
  - DIARRHOEA [None]
  - DIZZINESS [None]
  - HAEMORRHAGE [None]
  - VOMITING [None]
